FAERS Safety Report 12878919 (Version 2)
Quarter: 2017Q1

REPORT INFORMATION
  Report Type: Spontaneous
  Country: JP (occurrence: JP)
  Receive Date: 20161024
  Receipt Date: 20170127
  Transmission Date: 20170428
  Serious: Yes (Other)
  Sender: FDA-Public Use
  Company Number: JP-GILEAD-2016-0207231

PATIENT
  Age: 33 Year
  Sex: Male

DRUGS (2)
  1. TENOFOVIR DISOPROXIL FUMARATE. [Suspect]
     Active Substance: TENOFOVIR DISOPROXIL FUMARATE
     Indication: CHRONIC HEPATITIS B
     Dosage: 300 MG, QD
     Route: 048
     Dates: start: 20160112, end: 20160328
  2. URSO [Concomitant]
     Active Substance: URSODIOL
     Indication: CHRONIC HEPATITIS B
     Dosage: 100 MG, TID

REACTIONS (4)
  - Aspartate aminotransferase increased [Recovered/Resolved]
  - Hepatic function abnormal [Recovered/Resolved]
  - Hepatitis B [Recovering/Resolving]
  - Alanine aminotransferase increased [Recovered/Resolved]

NARRATIVE: CASE EVENT DATE: 20160308
